FAERS Safety Report 13619382 (Version 1)
Quarter: 2017Q2

REPORT INFORMATION
  Report Type: Spontaneous
  Country: US (occurrence: US)
  Receive Date: 20170606
  Receipt Date: 20170606
  Transmission Date: 20170830
  Serious: No
  Sender: FDA-Public Use
  Company Number: US-AMGEN-USASP2016148576

PATIENT
  Age: 48 Year
  Sex: Male

DRUGS (7)
  1. PROCRIT [Suspect]
     Active Substance: ERYTHROPOIETIN
     Indication: ANAEMIA POSTOPERATIVE
     Dosage: 20000 UNITS, UNK
     Route: 058
  2. CALCITRIOL. [Concomitant]
     Active Substance: CALCITRIOL
     Indication: HYPERPARATHYROIDISM
     Dosage: 0.5 MUG, QD
  3. AMLODIPINE [Concomitant]
     Active Substance: AMLODIPINE BESYLATE
     Indication: HYPERTENSION
     Dosage: 5 MG, BID
  4. MYFORTIC [Concomitant]
     Active Substance: MYCOPHENOLATE SODIUM
     Indication: IMMUNOSUPPRESSION
     Dosage: 360 MG, BID
     Dates: start: 20111005
  5. PROCRIT [Suspect]
     Active Substance: ERYTHROPOIETIN
     Indication: CHRONIC KIDNEY DISEASE
  6. SODIUM BICARBONATE. [Concomitant]
     Active Substance: SODIUM BICARBONATE
     Indication: ACIDOSIS
     Dosage: 1300 MG, QID
  7. CARVEDILOL. [Concomitant]
     Active Substance: CARVEDILOL
     Indication: HYPERTENSION
     Dosage: 6.25 MG, BID

REACTIONS (3)
  - Incorrect product storage [Unknown]
  - Wrong technique in product usage process [Unknown]
  - Inappropriate schedule of drug administration [Unknown]

NARRATIVE: CASE EVENT DATE: 2016
